FAERS Safety Report 8070473-4 (Version None)
Quarter: 2012Q1

REPORT INFORMATION
  Report Type: 
  Country: None (occurrence: None)
  Receive Date: 20120125
  Receipt Date: 20120117
  Transmission Date: 20120608
  Serious: Yes (Other)
  Sender: FDA-Public Use
  Company Number: JP-ELI_LILLY_AND_COMPANY-JP201201002443

PATIENT
  Age: 29 Year
  Sex: Female

DRUGS (5)
  1. DIGOXIN [Concomitant]
     Dosage: UNK
     Route: 048
     Dates: start: 20111206
  2. LASIX [Concomitant]
     Dosage: UNK
     Route: 048
     Dates: start: 20111206
  3. DORNER [Concomitant]
     Dosage: UNK
     Route: 048
     Dates: start: 20111211
  4. ALDACTONE [Concomitant]
     Dosage: UNK
     Route: 048
     Dates: start: 20111206
  5. ADCIRCA [Suspect]
     Dosage: 20 MG, QD
     Route: 048
     Dates: start: 20111212, end: 20111220

REACTIONS (1)
  - ATRIAL FIBRILLATION [None]
